FAERS Safety Report 21977897 (Version 1)
Quarter: 2023Q1

REPORT INFORMATION
  Report Type: Spontaneous
  Country: US (occurrence: US)
  Receive Date: 20230210
  Receipt Date: 20230210
  Transmission Date: 20230418
  Serious: Yes (Hospitalization)
  Sender: FDA-Public Use
  Company Number: US-MYLANLABS-2023M1014827

PATIENT
  Age: 57 Year
  Sex: Male

DRUGS (3)
  1. VANCOMYCIN [Suspect]
     Active Substance: VANCOMYCIN
     Indication: Evidence based treatment
     Dosage: UNK
     Route: 042
  2. CEFTRIAXONE [Suspect]
     Active Substance: CEFTRIAXONE
     Indication: Evidence based treatment
     Dosage: UNK
     Route: 042
  3. METRONIDAZOLE [Suspect]
     Active Substance: METRONIDAZOLE
     Indication: Evidence based treatment
     Dosage: UNK
     Route: 042

REACTIONS (3)
  - Immune thrombocytopenia [Recovered/Resolved]
  - Condition aggravated [Recovered/Resolved]
  - Haemoptysis [Unknown]
